FAERS Safety Report 17980692 (Version 1)
Quarter: 2020Q3

REPORT INFORMATION
  Report Type: Spontaneous
  Country: DE (occurrence: DE)
  Receive Date: 20200704
  Receipt Date: 20200704
  Transmission Date: 20201103
  Serious: Yes (Congenital Anomaly, Other)
  Sender: FDA-Public Use
  Company Number: DE-TEVA-2020-DE-1794159

PATIENT
  Sex: Female
  Weight: 2.72 kg

DRUGS (3)
  1. COPAXONE [Suspect]
     Active Substance: GLATIRAMER ACETATE
     Indication: MULTIPLE SCLEROSIS
     Dosage: 20 [MG/D (3X/WK) ] 3 SEPARATED DOSES, 60 MG
     Route: 064
     Dates: start: 20181119, end: 20190810
  2. SPASMEX [Concomitant]
     Indication: MULTIPLE SCLEROSIS
     Dosage: 30 MILLIGRAM DAILY;  (30?0?0)
     Route: 064
     Dates: start: 20181119, end: 20190206
  3. CITALOPRAM [Suspect]
     Active Substance: CITALOPRAM HYDROBROMIDE
     Indication: DEPRESSION
     Dosage: 22.5 [MG / D (UP TO 15)]
     Route: 064
     Dates: start: 20181119, end: 20190810

REACTIONS (4)
  - Infantile haemangioma [Unknown]
  - Hypotonia [Unknown]
  - Foetal exposure during pregnancy [Unknown]
  - Kinematic imbalances due to suboccipital strain [Recovered/Resolved]
